FAERS Safety Report 17394945 (Version 1)
Quarter: 2020Q1

REPORT INFORMATION
  Report Type: Spontaneous
  Country: US (occurrence: US)
  Receive Date: 20200210
  Receipt Date: 20200210
  Transmission Date: 20200409
  Serious: Yes (Other)
  Sender: FDA-Public Use
  Company Number: US-DRREDDYS-USA/USA/20/0119491

PATIENT
  Sex: Male
  Weight: 1.59 kg

DRUGS (5)
  1. DOPAMINE [Suspect]
     Active Substance: DOPAMINE HYDROCHLORIDE
     Indication: MECHANICAL VENTILATION
  2. DOPAMINE [Suspect]
     Active Substance: DOPAMINE HYDROCHLORIDE
  3. NOREPINEPHRINE. [Suspect]
     Active Substance: NOREPINEPHRINE
  4. NOREPINEPHRINE. [Suspect]
     Active Substance: NOREPINEPHRINE
     Indication: MECHANICAL VENTILATION
  5. DOBUTAMINE HYDROCHLORIDE. [Suspect]
     Active Substance: DOBUTAMINE HYDROCHLORIDE
     Indication: MECHANICAL VENTILATION

REACTIONS (1)
  - Drug ineffective [Unknown]
